FAERS Safety Report 10226697 (Version 1)
Quarter: 2014Q2

REPORT INFORMATION
  Report Type: Spontaneous
  Country: JP (occurrence: JP)
  Receive Date: 20140609
  Receipt Date: 20140609
  Transmission Date: 20141212
  Serious: Yes (Other)
  Sender: FDA-Public Use
  Company Number: JP-009507513-1406JPN003992

PATIENT
  Age: 64 Year
  Sex: Male
  Weight: 61.9 kg

DRUGS (5)
  1. PEGINTRON [Suspect]
     Indication: HEPATITIS C
     Dosage: DAILY DOSAGE UNKNOWN
     Route: 058
  2. REBETOL [Suspect]
     Indication: HEPATITIS C
     Dosage: DAILY DOSAGE UNKNOWN
     Route: 048
  3. TELAVIC [Suspect]
     Indication: HEPATITIS C
     Route: 048
  4. TACROLIMUS [Concomitant]
     Dosage: POR, DOSE INTERVAL: MORE THAN 1 WEEK (2 DOSES GIVEN)
     Route: 048
  5. TACROLIMUS [Concomitant]
     Dosage: POR, AVERAGE DOSE INTERVAL: 7.2 DAYS
     Route: 048

REACTIONS (2)
  - Pancytopenia [Unknown]
  - Blood creatinine increased [Unknown]
